FAERS Safety Report 10969090 (Version 1)
Quarter: 2015Q1

REPORT INFORMATION
  Report Type: Spontaneous
  Country: US (occurrence: US)
  Receive Date: 20150331
  Receipt Date: 20150331
  Transmission Date: 20150721
  Serious: No
  Sender: FDA-Public Use
  Company Number: US-LEO PHARMA-232832

PATIENT
  Sex: Female

DRUGS (1)
  1. PICATO [Suspect]
     Active Substance: INGENOL MEBUTATE
     Indication: BASAL CELL CARCINOMA
     Route: 061

REACTIONS (3)
  - Headache [Recovered/Resolved]
  - Product use issue [Unknown]
  - Application site pruritus [Recovered/Resolved]
